FAERS Safety Report 4403753-1 (Version None)
Quarter: 2004Q3

REPORT INFORMATION
  Report Type: 
  Country: None (occurrence: None)
  Receive Date: 20040719
  Receipt Date: 20040709
  Transmission Date: 20050211
  Serious: Yes (Other)
  Sender: FDA-Public Use
  Company Number: 2004-05-2074

PATIENT
  Age: 58 Year
  Sex: Male
  Weight: 68.0396 kg

DRUGS (9)
  1. EULEXIN [Suspect]
     Indication: PROSTATE CANCER
     Dosage: 125 MG BID ORAL
     Route: 048
     Dates: start: 20020901
  2. LAMICTAL [Suspect]
     Dosage: SEE IMAGE ORAL
     Route: 048
     Dates: start: 20020901
  3. WARFARIN SODIUM [Concomitant]
  4. FUROSEMIDE [Concomitant]
  5. POTASSIUM CHLORIDE [Concomitant]
  6. PROTONIX (PANTOPRAZOLE SODIUM) TABLETS [Concomitant]
  7. LIDOCAINE [Concomitant]
  8. NITRO-DUR [Concomitant]
  9. PROVIGIL [Concomitant]

REACTIONS (2)
  - CONDITION AGGRAVATED [None]
  - CONVULSION [None]
